FAERS Safety Report 4535333-1 (Version None)
Quarter: 2004Q4

REPORT INFORMATION
  Report Type: 
  Country: None (occurrence: None)
  Receive Date: 20041214
  Receipt Date: 20040916
  Transmission Date: 20050328
  Serious: No
  Sender: FDA-Public Use
  Company Number: 2004236726US

PATIENT
  Sex: Female

DRUGS (10)
  1. BEXTRA [Suspect]
     Indication: ARTHRITIS
     Dosage: 20 MG, STOPPED AFTER ONE WEEK ; 20 MG  : ORAL
     Route: 048
     Dates: start: 20040501, end: 20040101
  2. BEXTRA [Suspect]
     Indication: ARTHRITIS
     Dosage: 20 MG, STOPPED AFTER ONE WEEK ; 20 MG  : ORAL
     Route: 048
     Dates: start: 20040901, end: 20040915
  3. BENICAR HCT [Concomitant]
  4. TOPROL-XL [Concomitant]
  5. MONOPRIL [Concomitant]
  6. DIGOXIN [Concomitant]
  7. POTASSIUM [Concomitant]
  8. MINOCYCLINE HCL [Concomitant]
  9. CLARINEX [Concomitant]
  10. NEXIUM [Concomitant]

REACTIONS (3)
  - ARTHRALGIA [None]
  - BLOOD PRESSURE INCREASED [None]
  - ROSACEA [None]
